FAERS Safety Report 5679751-7 (Version None)
Quarter: 2008Q1

REPORT INFORMATION
  Report Type: 
  Country: None (occurrence: None)
  Receive Date: 20080324
  Receipt Date: 20080314
  Transmission Date: 20080703
  Serious: Yes (Other)
  Sender: FDA-Public Use
  Company Number: S07-USA-03453-01

PATIENT
  Age: 60 Year
  Sex: Female

DRUGS (4)
  1. LEXAPRO [Suspect]
     Indication: ANXIETY
     Dosage: 20 MG QD PO
     Route: 048
     Dates: start: 20060601
  2. LEXAPRO [Suspect]
     Indication: DEPRESSION
     Dosage: 20 MG QD PO
     Route: 048
     Dates: start: 20060601
  3. POSAMAX (ALENDRONATE SODIUM) [Concomitant]
  4. TOPRANIL (IMIPRAMINE HYDROCHLORIDE) [Concomitant]

REACTIONS (3)
  - DISEASE PROGRESSION [None]
  - FALL [None]
  - HEREDITARY SPASTIC PARAPLEGIA [None]
